FAERS Safety Report 8088610-4 (Version None)
Quarter: 2012Q1

REPORT INFORMATION
  Report Type: 
  Country: None (occurrence: None)
  Receive Date: 20120128
  Receipt Date: 20110418
  Transmission Date: 20120608
  Serious: No
  Sender: FDA-Public Use
  Company Number: US-ABBOTT-11P-163-0720545-00

PATIENT
  Sex: Male
  Weight: 113.5 kg

DRUGS (9)
  1. LORTAB [Concomitant]
     Indication: PAIN
  2. HUMIRA [Suspect]
     Indication: PSORIASIS
     Dates: start: 20100101
  3. METFFORMIN HYDROCHLORIDE [Concomitant]
     Indication: DIABETES MELLITUS
  4. SIMVASTATIN [Concomitant]
     Indication: BLOOD CHOLESTEROL INCREASED
  5. ANTIHYPERTENSIVES [Concomitant]
     Indication: HYPERTENSION
  6. LYRICA [Concomitant]
     Indication: DIABETIC NEUROPATHY
  7. DILAUDID [Concomitant]
     Indication: PAIN
  8. CLONIDINE [Concomitant]
     Indication: HYPERTENSION
  9. FLOVENT [Concomitant]
     Indication: CHRONIC OBSTRUCTIVE PULMONARY DISEASE

REACTIONS (1)
  - INJECTION SITE PAIN [None]
